FAERS Safety Report 5267180-X (Version None)
Quarter: 2007Q1

REPORT INFORMATION
  Report Type: 
  Country: None (occurrence: None)
  Receive Date: 20070312
  Receipt Date: 20070227
  Transmission Date: 20070707
  Serious: Yes (Congenital Anomaly, Other)
  Sender: FDA-Public Use
  Company Number: SPV1-2007-00929

PATIENT
  Age: 6 Week

DRUGS (1)
  1. CARBAMAZEPINE [Suspect]
     Dosage: TRANSPLACENTAL
     Route: 064

REACTIONS (5)
  - ARTERIOVENOUS MALFORMATION [None]
  - DRUG EXPOSURE DURING PREGNANCY [None]
  - DYSMORPHISM [None]
  - FOETAL ANTICONVULSANT SYNDROME [None]
  - HAEMORRHAGE INTRACRANIAL [None]
